FAERS Safety Report 5073420-2 (Version None)
Quarter: 2006Q3

REPORT INFORMATION
  Report Type: 
  Country: None (occurrence: None)
  Receive Date: 20060717
  Receipt Date: 20060110
  Transmission Date: 20061208
  Serious: No
  Sender: FDA-Public Use
  Company Number: 2005001075

PATIENT
  Age: 65 Year
  Sex: Female

DRUGS (10)
  1. TARCEVA [Suspect]
     Indication: NON-SMALL CELL LUNG CANCER
     Dosage: 150 MG (QD), ORAL
     Route: 048
     Dates: start: 20050517
  2. XOPENEX [Concomitant]
  3. IPRATROPIUM BROMIDE [Concomitant]
  4. WARFARIN SODIUM [Concomitant]
  5. PREDNISONE TAB [Concomitant]
  6. ADVAIR DISKUS 100/50 [Concomitant]
  7. ATIVAN [Concomitant]
  8. COMPAZINE [Concomitant]
  9. BACTRIM [Concomitant]
  10. MULTIVITAMIN [Concomitant]

REACTIONS (10)
  - BURNING SENSATION [None]
  - DECREASED APPETITE [None]
  - DYSPHONIA [None]
  - EYE DISCHARGE [None]
  - HYPERAESTHESIA [None]
  - NAUSEA [None]
  - ORAL DISCOMFORT [None]
  - ORAL PAIN [None]
  - SCAB [None]
  - WEIGHT DECREASED [None]
